FAERS Safety Report 23445786 (Version 1)
Quarter: 2024Q1

REPORT INFORMATION
  Report Type: Spontaneous
  Country: PL (occurrence: PL)
  Receive Date: 20240126
  Receipt Date: 20240126
  Transmission Date: 20240410
  Serious: Yes (Other)
  Sender: FDA-Public Use
  Company Number: PL-EPICPHARMA-PL-2024EPCLIT00132

PATIENT
  Age: 43 Year
  Sex: Male

DRUGS (1)
  1. TRIAMCINOLONE ACETONIDE [Suspect]
     Active Substance: TRIAMCINOLONE ACETONIDE
     Indication: Macular oedema
     Dosage: 4 MG/0.1 ML
     Route: 035

REACTIONS (2)
  - Central serous chorioretinopathy [Recovered/Resolved]
  - Product use in unapproved indication [Unknown]
